FAERS Safety Report 8503269-7 (Version None)
Quarter: 2012Q3

REPORT INFORMATION
  Report Type: 
  Country: None (occurrence: None)
  Receive Date: 20120711
  Receipt Date: 20120703
  Transmission Date: 20120928
  Serious: No
  Sender: FDA-Public Use
  Company Number: US-ASTRAZENECA-2011SE25113

PATIENT
  Sex: Female

DRUGS (31)
  1. CALCIUM [Concomitant]
  2. ASPIRIN [Concomitant]
     Indication: CARDIAC DISORDER
  3. POTASSIUM CL [Concomitant]
  4. DEPO-PROVERA [Concomitant]
  5. CIMZA [Concomitant]
  6. FOLIC ACID [Concomitant]
  7. CRESTOR [Concomitant]
  8. VICTOZA [Concomitant]
  9. QVAR 40 [Concomitant]
  10. CYCLOBENZAPRINE [Concomitant]
  11. NEXIUM [Suspect]
     Route: 048
  12. FEOSOL [Concomitant]
  13. METHOCARBAMOL [Concomitant]
  14. PROMETHAZINE [Concomitant]
  15. VITAMIN E [Concomitant]
  16. DIGESTIVE ADVANTAGE [Concomitant]
     Indication: IRRITABLE BOWEL SYNDROME
  17. ASACOL HD [Concomitant]
  18. VITAMIN B-12 [Concomitant]
  19. LOVAZA [Concomitant]
  20. HYDROCHLOROTHIAZIDE [Concomitant]
  21. METFORMIN HCL [Concomitant]
  22. DIOVAN HCT [Concomitant]
  23. LOVAZA [Concomitant]
  24. VITAMIN D [Concomitant]
  25. ENTOCORT EC [Suspect]
     Route: 048
  26. HYDROXYZINE HCL [Concomitant]
  27. VITAMIN A [Concomitant]
  28. ASCORBIC ACID [Concomitant]
  29. CIPROFLOXACIN [Concomitant]
  30. METOPROLOL SUCCINATE [Concomitant]
  31. MULTIPLE VITAMINS [Concomitant]

REACTIONS (2)
  - MIGRAINE [None]
  - OFF LABEL USE [None]
